FAERS Safety Report 24554016 (Version 1)
Quarter: 2024Q4

REPORT INFORMATION
  Report Type: Spontaneous
  Country: JP (occurrence: JP)
  Receive Date: 20241028
  Receipt Date: 20241028
  Transmission Date: 20250115
  Serious: Yes (Hospitalization)
  Sender: NOVARTIS
  Company Number: JP-002147023-NVSJ2024JP012509

PATIENT
  Age: 64 Year
  Sex: Male

DRUGS (2)
  1. LEQVIO [Suspect]
     Active Substance: INCLISIRAN SODIUM
     Indication: Dyslipidaemia
     Dosage: 300 MG
     Route: 058
     Dates: start: 20240925, end: 20240925
  2. Livazebe [Concomitant]
     Indication: Product used for unknown indication
     Dosage: UNK
     Route: 048

REACTIONS (3)
  - Acute myocardial infarction [Recovering/Resolving]
  - Arteriosclerosis [Unknown]
  - Concomitant disease progression [Unknown]

NARRATIVE: CASE EVENT DATE: 20241002
